FAERS Safety Report 16735680 (Version 1)
Quarter: 2019Q3

REPORT INFORMATION
  Report Type: Report from Study
  Country: US (occurrence: US)
  Receive Date: 20190823
  Receipt Date: 20190823
  Transmission Date: 20191005
  Serious: Yes (Hospitalization)
  Sender: FDA-Public Use
  Company Number: US-BAYER-2019-111820

PATIENT
  Age: 44 Year
  Sex: Female

DRUGS (5)
  1. BETASERON [Suspect]
     Active Substance: INTERFERON BETA-1B
     Indication: RELAPSING-REMITTING MULTIPLE SCLEROSIS
     Dosage: 8 MIU, QOD
     Route: 058
  2. BROMOCRIPTINE [Concomitant]
     Active Substance: BROMOCRIPTINE
  3. CLARITIN [Concomitant]
     Active Substance: LORATADINE
  4. BETASERON [Suspect]
     Active Substance: INTERFERON BETA-1B
     Indication: RELAPSING-REMITTING MULTIPLE SCLEROSIS
     Dosage: 8 MIU, QOD
     Route: 058
     Dates: start: 20030703
  5. VITAMIN D [VITAMIN D NOS] [Concomitant]
     Active Substance: VITAMIN D NOS

REACTIONS (6)
  - Product dose omission [None]
  - Migraine [None]
  - Product dose omission [Recovered/Resolved]
  - Product dose omission [Not Recovered/Not Resolved]
  - Product dose omission [None]
  - Product dose omission [None]

NARRATIVE: CASE EVENT DATE: 20190604
